FAERS Safety Report 7283861-0 (Version None)
Quarter: 2011Q1

REPORT INFORMATION
  Report Type: 
  Country: None (occurrence: None)
  Receive Date: 20110209
  Receipt Date: 20110126
  Transmission Date: 20110831
  Serious: Yes (Other)
  Sender: FDA-Public Use
  Company Number: FR-PFIZER INC-2011015121

PATIENT
  Age: 56 Year
  Sex: Female

DRUGS (9)
  1. FUROSEMIDE AND SPIRONOLACTONE [Concomitant]
  2. OMEPRAZOLE [Concomitant]
  3. PREDNISONE [Concomitant]
  4. SIROLIMUS [Interacting]
     Dosage: UNK
     Dates: start: 20030101, end: 20080201
  5. TAHOR [Suspect]
     Dosage: UNK
  6. VERAPAMIL [Concomitant]
  7. URAPIDIL [Concomitant]
  8. MYCOPHENOLATE MOFETIL [Concomitant]
  9. LEVOTHYROXINE SODIUM [Concomitant]

REACTIONS (2)
  - DRUG INTERACTION [None]
  - PNEUMONIA [None]
